FAERS Safety Report 7895973-9 (Version None)
Quarter: 2011Q4

REPORT INFORMATION
  Report Type: 
  Country: None (occurrence: None)
  Receive Date: 20111106
  Receipt Date: 20110901
  Transmission Date: 20120403
  Serious: No
  Sender: FDA-Public Use
  Company Number: US-AMGEN-USASP2011044952

PATIENT
  Age: 62 Year
  Sex: Female

DRUGS (1)
  1. ENBREL [Suspect]
     Indication: RHEUMATOID ARTHRITIS
     Dosage: 50 MG, QWK
     Dates: start: 20110603, end: 20110826

REACTIONS (6)
  - VOMITING [None]
  - ABDOMINAL PAIN [None]
  - GASTROINTESTINAL BACTERIAL INFECTION [None]
  - URINARY TRACT INFECTION [None]
  - WEIGHT DECREASED [None]
  - DIARRHOEA [None]
